FAERS Safety Report 12594359 (Version 1)
Quarter: 2016Q3

REPORT INFORMATION
  Report Type: Spontaneous
  Country: US (occurrence: US)
  Receive Date: 20160726
  Receipt Date: 20160726
  Transmission Date: 20161109
  Serious: Yes (Hospitalization)
  Sender: FDA-Public Use
  Company Number: US-UNITED THERAPEUTICS-UNT-2016-000668

PATIENT
  Sex: Female

DRUGS (1)
  1. REMODULIN [Suspect]
     Active Substance: TREPROSTINIL
     Indication: PULMONARY ARTERIAL HYPERTENSION
     Dosage: 0.0635 ?G/KG/MIN, CONTINUING
     Route: 058
     Dates: start: 20130725

REACTIONS (2)
  - Dyspnoea [Recovering/Resolving]
  - Chest pain [Unknown]

NARRATIVE: CASE EVENT DATE: 20160108
